FAERS Safety Report 7893645-8 (Version None)
Quarter: 2011Q4

REPORT INFORMATION
  Report Type: 
  Country: None (occurrence: None)
  Receive Date: 20111104
  Receipt Date: 20111027
  Transmission Date: 20120403
  Serious: Yes (Hospitalization)
  Sender: FDA-Public Use
  Company Number: FR-GLAXOSMITHKLINE-B0758601A

PATIENT
  Sex: Male

DRUGS (11)
  1. ASPIRIN [Suspect]
     Indication: PRODUCT USED FOR UNKNOWN INDICATION
     Dosage: 2UNIT PER DAY
     Route: 048
     Dates: start: 20111006, end: 20111006
  2. LOVENOX [Suspect]
     Indication: PRODUCT USED FOR UNKNOWN INDICATION
     Dosage: .6ML TWICE PER DAY
     Route: 058
     Dates: start: 20111005, end: 20111006
  3. GLUCOPHAGE [Concomitant]
     Dosage: 1000MG TWICE PER DAY
     Route: 048
  4. METOPROLOL TARTRATE [Concomitant]
     Route: 048
  5. ALLOPURINOL [Concomitant]
     Dosage: 300MG PER DAY
     Route: 048
  6. EZETIMIBE [Concomitant]
     Route: 048
  7. ZESTRIL [Concomitant]
     Dosage: 20MG PER DAY
     Route: 048
     Dates: end: 20111006
  8. CLORAZEPATE DIPOTASSIUM [Concomitant]
     Dosage: 5MG AT NIGHT
     Route: 048
  9. LEXOMIL [Concomitant]
     Route: 048
  10. ARIXTRA [Suspect]
     Indication: DEEP VEIN THROMBOSIS
     Route: 058
     Dates: end: 20111003
  11. ALDACTONE [Concomitant]
     Dosage: 25MG PER DAY
     Route: 048
     Dates: end: 20111006

REACTIONS (7)
  - RECTAL HAEMORRHAGE [None]
  - DRUG INTERACTION [None]
  - ABDOMINAL DISTENSION [None]
  - PALLOR [None]
  - HYPOTENSION [None]
  - ANAEMIA [None]
  - ABDOMINAL PAIN [None]
